FAERS Safety Report 16899331 (Version 1)
Quarter: 2019Q4

REPORT INFORMATION
  Report Type: Report from Study
  Country: None (occurrence: US)
  Receive Date: 20191009
  Receipt Date: 20191009
  Transmission Date: 20200122
  Serious: Yes (Other)
  Sender: FDA-Public Use
  Company Number: US-ABBVIE-19K-163-2932398-00

PATIENT
  Sex: Female

DRUGS (3)
  1. HUMIRA [Suspect]
     Active Substance: ADALIMUMAB
     Indication: PSORIASIS
     Dosage: CITRATE FREE
     Route: 058
  2. METHOTREXATE. [Suspect]
     Active Substance: METHOTREXATE
     Indication: PRODUCT USED FOR UNKNOWN INDICATION
     Route: 065
  3. HUMIRA [Suspect]
     Active Substance: ADALIMUMAB
     Indication: PSORIATIC ARTHROPATHY

REACTIONS (8)
  - Joint injury [Unknown]
  - Balance disorder [Unknown]
  - Bursitis [Recovering/Resolving]
  - Fall [Recovering/Resolving]
  - Abdominal discomfort [Unknown]
  - Spinal nerve stimulator implantation [Recovering/Resolving]
  - Asthenia [Unknown]
  - Rheumatoid arthritis [Unknown]
